FAERS Safety Report 7790071-7 (Version None)
Quarter: 2011Q3

REPORT INFORMATION
  Report Type: 
  Country: None (occurrence: None)
  Receive Date: 20110930
  Receipt Date: 20101206
  Transmission Date: 20111222
  Serious: No
  Sender: FDA-Public Use
  Company Number: US-ASTRAZENECA-2010SE56433

PATIENT
  Sex: Female

DRUGS (1)
  1. ARIMIDEX [Suspect]
     Indication: BREAST CANCER
     Route: 048
     Dates: start: 20060101

REACTIONS (6)
  - WHEEZING [None]
  - NASOPHARYNGITIS [None]
  - ASTHMA [None]
  - BACK PAIN [None]
  - ARTHRALGIA [None]
  - COUGH [None]
